FAERS Safety Report 6174297-4 (Version None)
Quarter: 2009Q2

REPORT INFORMATION
  Report Type: 
  Country: None (occurrence: None)
  Receive Date: 20090430
  Receipt Date: 20080505
  Transmission Date: 20091009
  Serious: No
  Sender: FDA-Public Use
  Company Number: US-ASTRAZENECA-2008UW09304

PATIENT
  Age: 27 Year
  Sex: Female

DRUGS (2)
  1. NEXIUM [Suspect]
     Indication: GASTRITIS
     Route: 048
     Dates: start: 20080505
  2. MIRCETTE [Concomitant]

REACTIONS (4)
  - DIARRHOEA [None]
  - NAIL DISCOLOURATION [None]
  - PALLOR [None]
  - TREMOR [None]
